FAERS Safety Report 23629085 (Version 1)
Quarter: 2024Q1

REPORT INFORMATION
  Report Type: Spontaneous
  Country: US (occurrence: None)
  Receive Date: 20240313
  Receipt Date: 20240313
  Transmission Date: 20240410
  Serious: Yes (Hospitalization)
  Sender: FDA-Public Use
  Company Number: US-FARMAPROD-202402-0546

PATIENT
  Sex: Male

DRUGS (19)
  1. OXERVATE [Suspect]
     Active Substance: CENEGERMIN-BKBJ
     Indication: Neurotrophic keratopathy
     Route: 047
     Dates: start: 20240123
  2. KRYSTEXXA [Concomitant]
     Active Substance: PEGLOTICASE
     Dosage: VIAL
  3. VITAMIN D3 [Concomitant]
     Active Substance: CHOLECALCIFEROL
  4. ALLERGY RELIEF-D [Concomitant]
  5. ZYRTEC [Concomitant]
     Active Substance: CETIRIZINE HYDROCHLORIDE
  6. COLCHICINE [Concomitant]
     Active Substance: COLCHICINE
  7. METOPROLOL TARTRATE [Concomitant]
     Active Substance: METOPROLOL TARTRATE
  8. FUROSEMIDE [Concomitant]
     Active Substance: FUROSEMIDE
  9. MYCOPHENOLATE MOFETIL [Concomitant]
     Active Substance: MYCOPHENOLATE MOFETIL
  10. TAMSULOSIN HYDROCHLORIDE [Concomitant]
     Active Substance: TAMSULOSIN HYDROCHLORIDE
  11. TUMS [Concomitant]
     Active Substance: CALCIUM CARBONATE
     Dosage: (500)
  12. XTANDI [Concomitant]
     Active Substance: ENZALUTAMIDE
  13. CREON [Concomitant]
     Active Substance: PANCRELIPASE AMYLASE\PANCRELIPASE LIPASE\PANCRELIPASE PROTEASE
     Dosage: 12K-38K-60
  14. TRAMADOL HCL [Concomitant]
     Active Substance: TRAMADOL HYDROCHLORIDE
  15. TYLENOL [Concomitant]
     Active Substance: ACETAMINOPHEN
  16. ELIQUIS [Concomitant]
     Active Substance: APIXABAN
  17. CALCIUM [Concomitant]
     Active Substance: CALCIUM
     Dosage: (1250)
  18. MOXIFLOXACIN [Concomitant]
     Active Substance: MOXIFLOXACIN
  19. REFRESH TEARS [Concomitant]
     Active Substance: CARBOXYMETHYLCELLULOSE SODIUM

REACTIONS (4)
  - Surgery [Unknown]
  - Off label use [Unknown]
  - Herpes zoster [Unknown]
  - Vision blurred [Unknown]
